FAERS Safety Report 10015914 (Version 3)
Quarter: 2014Q2

REPORT INFORMATION
  Report Type: Spontaneous
  Country: JP (occurrence: JP)
  Receive Date: 20140317
  Receipt Date: 20140402
  Transmission Date: 20141212
  Serious: Yes (Death, Hospitalization, Other)
  Sender: FDA-Public Use
  Company Number: JP-TAKEDA-2014TJP003830

PATIENT
  Age: 75 Year
  Sex: Female
  Weight: 38.5 kg

DRUGS (7)
  1. LANSOPRAZOLE [Suspect]
     Indication: GASTROOESOPHAGEAL REFLUX DISEASE
     Dosage: 15 MG, QD
     Route: 065
     Dates: start: 20130825, end: 20140215
  2. LANSOPRAZOLE [Suspect]
     Dosage: 15 MG, QD
     Route: 065
     Dates: start: 20140218, end: 20140222
  3. OLMESARTAN [Suspect]
     Indication: HYPERTENSION
     Dosage: 20 MG, QD
     Route: 048
     Dates: start: 201402, end: 20140218
  4. GLYCERYL TRINITRATE [Suspect]
     Indication: HYPERTENSION
     Dosage: UNK, QD
     Route: 062
     Dates: start: 20140202, end: 20140222
  5. ELIQUIS [Suspect]
     Indication: ATRIAL FIBRILLATION
     Dosage: 2.5 MG, BID
     Route: 048
     Dates: start: 20130825, end: 20140222
  6. ELIQUIS [Suspect]
     Indication: CEREBRAL INFARCTION
  7. AMLODIPINE BESILATE / IRBESARTAN [Suspect]
     Indication: HYPERTENSION
     Dosage: UNK, QD
     Route: 048
     Dates: start: 20140219, end: 20140222

REACTIONS (2)
  - Extradural haematoma [Fatal]
  - Cerebral haemorrhage [Recovering/Resolving]
